FAERS Safety Report 5104039-2 (Version None)
Quarter: 2006Q3

REPORT INFORMATION
  Report Type: 
  Country: None (occurrence: None)
  Receive Date: 20060911
  Receipt Date: 20060829
  Transmission Date: 20061208
  Serious: Yes (Death, Disabling)
  Sender: FDA-Public Use
  Company Number: 2006098928

PATIENT
  Age: 28 Year
  Sex: Male
  Weight: 68.9467 kg

DRUGS (5)
  1. SUTENT [Suspect]
     Indication: GASTROINTESTINAL STROMAL TUMOUR
     Dosage: 50 MG (50 MG, 1 IN 1 D), ORAL
     Route: 048
     Dates: start: 20060711, end: 20060806
  2. DURAGESIC-100 [Concomitant]
  3. DILAUDID [Concomitant]
  4. PANTOPRAZOLE SODIUM [Concomitant]
  5. ATIVAN [Concomitant]

REACTIONS (11)
  - ALOPECIA [None]
  - DECREASED APPETITE [None]
  - DIARRHOEA [None]
  - DRY MOUTH [None]
  - DYSGEUSIA [None]
  - FATIGUE [None]
  - HYPERSOMNIA [None]
  - MALIGNANT NEOPLASM PROGRESSION [None]
  - NEUTROPHIL COUNT DECREASED [None]
  - STOMATITIS [None]
  - WHITE BLOOD CELL COUNT DECREASED [None]
